FAERS Safety Report 25242811 (Version 1)
Quarter: 2025Q2

REPORT INFORMATION
  Report Type: Report from Study
  Country: US (occurrence: US)
  Receive Date: 20250427
  Receipt Date: 20250427
  Transmission Date: 20250717
  Serious: Yes (Other)
  Sender: ALEXION PHARMACEUTICALS
  Company Number: US-ASTRAZENECA-202504USA021048US

PATIENT

DRUGS (1)
  1. OSIMERTINIB [Suspect]
     Active Substance: OSIMERTINIB
     Indication: Lung carcinoma cell type unspecified stage 0
     Dosage: 80 MILLIGRAM, QD

REACTIONS (6)
  - Neuropathy peripheral [Unknown]
  - Pain in extremity [Unknown]
  - Constipation [Unknown]
  - Bowel movement irregularity [Unknown]
  - Pain [Unknown]
  - Restlessness [Unknown]
